FAERS Safety Report 4969769-1 (Version None)
Quarter: 2006Q2

REPORT INFORMATION
  Report Type: 
  Country: None (occurrence: None)
  Receive Date: 20060411
  Receipt Date: 20051207
  Transmission Date: 20061013
  Serious: Yes (Hospitalization)
  Sender: FDA-Public Use
  Company Number: US-MERCK-0512USA01362

PATIENT
  Age: 73 Year
  Sex: Male
  Weight: 82 kg

DRUGS (12)
  1. NITROGLYCERIN [Concomitant]
     Route: 060
  2. ASPIRIN [Concomitant]
     Route: 048
  3. VIOXX [Suspect]
     Indication: ARTHRITIS
     Route: 048
     Dates: start: 20010724, end: 20041001
  4. DIPHENHYDRAMINE HYDROCHLORIDE [Concomitant]
     Route: 048
  5. METOCLOPRAMIDE [Concomitant]
     Route: 048
  6. AMITRIPTYLINE HYDROCHLORIDE [Concomitant]
     Route: 048
  7. FELODIPINE [Concomitant]
     Route: 048
  8. ATENOLOL [Concomitant]
     Route: 048
  9. LOVASTATIN [Concomitant]
     Route: 048
  10. CIMETIDINE [Concomitant]
     Route: 048
  11. ALBUTEROL [Concomitant]
     Route: 055
  12. IPRATROPIUM BROMIDE [Concomitant]
     Route: 055

REACTIONS (35)
  - ABDOMINAL DISCOMFORT [None]
  - ABDOMINAL PAIN [None]
  - ABDOMINAL PAIN UPPER [None]
  - ANGINA UNSTABLE [None]
  - ARTERIOSCLEROSIS CORONARY ARTERY [None]
  - ASTHENIA [None]
  - BACK PAIN [None]
  - BRADYCARDIA [None]
  - CARDIOMEGALY [None]
  - CAROTID SINUS SYNDROME [None]
  - CEREBROVASCULAR ACCIDENT [None]
  - CHEST PAIN [None]
  - CORONARY ARTERY DISEASE [None]
  - DIARRHOEA [None]
  - DYSARTHRIA [None]
  - FALL [None]
  - GALLBLADDER DISORDER [None]
  - GASTRIC HAEMORRHAGE [None]
  - GASTROOESOPHAGEAL REFLUX DISEASE [None]
  - HAEMATEMESIS [None]
  - HEART RATE DECREASED [None]
  - HYPERTENSIVE CRISIS [None]
  - HYPERTROPHY BREAST [None]
  - HYPOKALAEMIA [None]
  - INTESTINAL OBSTRUCTION [None]
  - LIBIDO DECREASED [None]
  - NAUSEA [None]
  - OSTEOARTHRITIS [None]
  - PAIN IN EXTREMITY [None]
  - PANCREATITIS CHRONIC [None]
  - PNEUMONIA [None]
  - SPINAL OSTEOARTHRITIS [None]
  - TOOTH LOSS [None]
  - URINARY TRACT INFECTION [None]
  - WEIGHT DECREASED [None]
